FAERS Safety Report 9447904 (Version 1)
Quarter: 2013Q3

REPORT INFORMATION
  Report Type: Spontaneous
  Country: US (occurrence: US)
  Receive Date: 20130808
  Receipt Date: 20130808
  Transmission Date: 20140515
  Serious: Yes (Other)
  Sender: FDA-Public Use
  Company Number: PHEH2013US016512

PATIENT
  Sex: Male

DRUGS (8)
  1. EXELON PATCH [Suspect]
     Dosage: 4.6 MG, UNK
     Route: 062
  2. EXELON PATCH [Suspect]
     Dosage: 9.5 MG, UNK
     Route: 062
  3. EXELON PATCH [Suspect]
     Dosage: 13.5 MG, UNK
     Route: 062
  4. LEVOTHYROXINE [Concomitant]
     Dosage: 100 UG, UNK
  5. ROPINIROLE [Concomitant]
     Dosage: 4 MG, UNK
  6. FISH OIL [Concomitant]
  7. VITAMIN B12 [Concomitant]
  8. GINKO BILOBA [Concomitant]

REACTIONS (1)
  - Ventricular extrasystoles [Unknown]
